FAERS Safety Report 7485528-2 (Version None)
Quarter: 2011Q2

REPORT INFORMATION
  Report Type: 
  Country: None (occurrence: None)
  Receive Date: 20110517
  Receipt Date: 20110506
  Transmission Date: 20111010
  Serious: Yes (Death)
  Sender: FDA-Public Use
  Company Number: US-ACTELION-A-US2011-48467

PATIENT

DRUGS (2)
  1. TRACLEER [Suspect]
     Indication: PORTOPULMONARY HYPERTENSION
     Dosage: UNK
     Route: 048
     Dates: start: 20031029, end: 20110417
  2. VIAGRA [Concomitant]

REACTIONS (1)
  - PNEUMONIA [None]
